FAERS Safety Report 19655284 (Version 1)
Quarter: 2021Q3

REPORT INFORMATION
  Report Type: Spontaneous
  Country: GB (occurrence: GB)
  Receive Date: 20210804
  Receipt Date: 20210804
  Transmission Date: 20211014
  Serious: Yes (Death, Other)
  Sender: FDA-Public Use
  Company Number: GB-AUROBINDO-AUR-APL-2009-00284

PATIENT
  Age: 69 Year
  Sex: Male

DRUGS (5)
  1. ERTAPENEM. [Suspect]
     Active Substance: ERTAPENEM SODIUM
     Indication: BACTERAEMIA
     Dosage: UNK
     Route: 042
  2. COTRIMOXAZOL [Suspect]
     Active Substance: SULFAMETHOXAZOLE\TRIMETHOPRIM
     Indication: BACTERAEMIA
     Dosage: UNK UNK,UNK,UNKNOWN,UNKNOWN
     Route: 042
  3. CEFTAZIDIME. [Suspect]
     Active Substance: CEFTAZIDIME
     Indication: BACTERAEMIA
     Dosage: UNK
     Route: 065
  4. TIGECYCLINE. [Suspect]
     Active Substance: TIGECYCLINE
     Indication: BACTERAEMIA
     Dosage: UNK
     Route: 042
  5. CIPROFLOXACIN. [Suspect]
     Active Substance: CIPROFLOXACIN
     Indication: BACTERAEMIA
     Dosage: UNK
     Route: 048

REACTIONS (15)
  - Endotracheal intubation [Fatal]
  - Renal abscess [Fatal]
  - Chills [Fatal]
  - Splenic abscess [Fatal]
  - Pathogen resistance [Fatal]
  - Intestinal ischaemia [Fatal]
  - Bacteraemia [Fatal]
  - Multiple organ dysfunction syndrome [Fatal]
  - Hepatic infarction [Fatal]
  - Respiratory failure [Fatal]
  - Endocarditis [Fatal]
  - Liver abscess [Fatal]
  - Heart valve replacement [Fatal]
  - Pyrexia [Fatal]
  - Renal infarct [Fatal]
